FAERS Safety Report 22940582 (Version 2)
Quarter: 2023Q4

REPORT INFORMATION
  Report Type: Report from Study
  Country: US (occurrence: US)
  Receive Date: 20230913
  Receipt Date: 20231007
  Transmission Date: 20240110
  Serious: No
  Sender: FDA-Public Use
  Company Number: US-002147023-NVSC2023US198316

PATIENT
  Age: 72 Year
  Sex: Female

DRUGS (1)
  1. ENTRESTO [Suspect]
     Active Substance: SACUBITRIL\VALSARTAN
     Indication: Cardiac failure
     Dosage: 1 DOSAGE FORM, BID
     Route: 048
     Dates: start: 202209

REACTIONS (7)
  - Cough [Recovering/Resolving]
  - Eye infection [Recovering/Resolving]
  - Cheilitis [Recovering/Resolving]
  - Neck mass [Not Recovered/Not Resolved]
  - Sneezing [Not Recovered/Not Resolved]
  - Throat irritation [Not Recovered/Not Resolved]
  - Sinus disorder [Not Recovered/Not Resolved]

NARRATIVE: CASE EVENT DATE: 20221201
